FAERS Safety Report 21776434 (Version 3)
Quarter: 2023Q1

REPORT INFORMATION
  Report Type: Spontaneous
  Country: RO (occurrence: RO)
  Receive Date: 20221226
  Receipt Date: 20230203
  Transmission Date: 20230418
  Serious: Yes (Other)
  Sender: FDA-Public Use
  Company Number: RO-NOVOPROD-1004208

PATIENT
  Age: 60 Year
  Sex: Female

DRUGS (6)
  1. OZEMPIC [Suspect]
     Active Substance: SEMAGLUTIDE
     Indication: Obesity
     Dosage: 0.25  MG
  2. PIRACETAM [Concomitant]
     Active Substance: PIRACETAM
     Indication: Product used for unknown indication
     Dosage: UNK
  3. VENTOLIN [Concomitant]
     Active Substance: ALBUTEROL SULFATE
     Indication: Product used for unknown indication
     Dosage: UNK
  4. BISOPROLOL [Concomitant]
     Active Substance: BISOPROLOL
     Indication: Product used for unknown indication
     Dosage: UNK
  5. ASPIRIN [Concomitant]
     Active Substance: ASPIRIN
     Indication: Product used for unknown indication
     Dosage: UNK
  6. ATACAND [Concomitant]
     Active Substance: CANDESARTAN CILEXETIL
     Indication: Product used for unknown indication
     Dosage: UNK

REACTIONS (4)
  - Sepsis [Unknown]
  - Pneumonia [Unknown]
  - Hypersensitivity [Unknown]
  - Off label use [Unknown]
